FAERS Safety Report 11509953 (Version 1)
Quarter: 2015Q3

REPORT INFORMATION
  Report Type: Spontaneous
  Country: US (occurrence: US)
  Receive Date: 20150915
  Receipt Date: 20150915
  Transmission Date: 20151125
  Serious: No
  Sender: FDA-Public Use
  Company Number: US-JNJFOC-20150807084

PATIENT
  Age: 88 Year
  Sex: Female
  Weight: 67.13 kg

DRUGS (4)
  1. PEPCID COMPLETE [Suspect]
     Active Substance: CALCIUM CARBONATE\FAMOTIDINE\MAGNESIUM HYDROXIDE
     Indication: GASTROOESOPHAGEAL REFLUX DISEASE
     Route: 048
     Dates: start: 201411
  2. MAGNESIUM [Concomitant]
     Active Substance: MAGNESIUM
     Indication: HEART RATE IRREGULAR
     Route: 065
  3. PEPCID COMPLETE [Suspect]
     Active Substance: CALCIUM CARBONATE\FAMOTIDINE\MAGNESIUM HYDROXIDE
     Route: 048
  4. VITAMIN B [Concomitant]
     Active Substance: VITAMIN B
     Indication: ROUTINE HEALTH MAINTENANCE
     Route: 065
     Dates: start: 20150810

REACTIONS (2)
  - Drug hypersensitivity [Unknown]
  - Headache [Unknown]

NARRATIVE: CASE EVENT DATE: 201411
